FAERS Safety Report 6742421-8 (Version None)
Quarter: 2010Q2

REPORT INFORMATION
  Report Type: 
  Country: None (occurrence: None)
  Receive Date: 20100526
  Receipt Date: 20100518
  Transmission Date: 20101027
  Serious: Yes (Hospitalization)
  Sender: FDA-Public Use
  Company Number: US-SANOFI-AVENTIS-2010SA029328

PATIENT
  Age: 68 Year
  Sex: Female
  Weight: 66.22 kg

DRUGS (3)
  1. APIDRA [Suspect]
     Indication: TYPE 2 DIABETES MELLITUS
     Dosage: 1 U FOR Q 3 GMS  CARBS W/ BREAKFAST/ LUNCH,1 U FOR Q 6 GMS CARBS W/ DINNER AND 1 U AT HS W/ SNACK
     Route: 058
     Dates: start: 20100501, end: 20100518
  2. STARLIX [Concomitant]
     Dates: end: 20100512
  3. INSULIN DETEMIR [Concomitant]
     Dates: end: 20100512

REACTIONS (9)
  - DYSPNOEA [None]
  - GAIT DISTURBANCE [None]
  - HYPERSOMNIA [None]
  - OEDEMA PERIPHERAL [None]
  - PERICARDIAL EFFUSION [None]
  - PULMONARY OEDEMA [None]
  - SWEAT GLAND DISORDER [None]
  - VISION BLURRED [None]
  - WEIGHT INCREASED [None]
